FAERS Safety Report 25383097 (Version 2)
Quarter: 2025Q2

REPORT INFORMATION
  Report Type: Spontaneous
  Country: IT (occurrence: IT)
  Receive Date: 20250602
  Receipt Date: 20250609
  Transmission Date: 20250717
  Serious: Yes (Hospitalization, Other)
  Sender: SANDOZ
  Company Number: IT-002147023-PHHY2019IT192060

PATIENT
  Age: 23 Year
  Sex: Male
  Weight: 60 kg

DRUGS (5)
  1. LAPINE T-LYMPHOCYTE IMMUNE GLOBULIN [Suspect]
     Active Substance: LAPINE T-LYMPHOCYTE IMMUNE GLOBULIN
     Indication: Immunosuppressant drug therapy
     Route: 065
  2. MYCOPHENOLIC ACID [Suspect]
     Active Substance: MYCOPHENOLIC ACID
     Indication: Renal transplant
     Route: 065
  3. MYCOPHENOLIC ACID [Suspect]
     Active Substance: MYCOPHENOLIC ACID
     Indication: Immunosuppressant drug therapy
  4. TACROLIMUS [Suspect]
     Active Substance: TACROLIMUS
     Indication: Renal transplant
     Route: 065
  5. TACROLIMUS [Suspect]
     Active Substance: TACROLIMUS
     Indication: Immunosuppressant drug therapy

REACTIONS (12)
  - Cytokine release syndrome [Recovered/Resolved]
  - Lactic acidosis [Recovered/Resolved]
  - Acute respiratory distress syndrome [Recovered/Resolved]
  - Cardiac dysfunction [Recovered/Resolved]
  - Metabolic disorder [Recovered/Resolved]
  - Haemodynamic instability [Recovered/Resolved]
  - Renal impairment [Recovered/Resolved]
  - Kidney transplant rejection [Recovering/Resolving]
  - Respiratory disorder [Recovering/Resolving]
  - Mean arterial pressure decreased [Recovering/Resolving]
  - Multiple organ dysfunction syndrome [Recovering/Resolving]
  - Complications of transplanted kidney [Recovering/Resolving]
